FAERS Safety Report 5213741-3 (Version None)
Quarter: 2007Q1

REPORT INFORMATION
  Report Type: 
  Country: None (occurrence: None)
  Receive Date: 20070119
  Receipt Date: 20070108
  Transmission Date: 20070707
  Serious: Yes (Other)
  Sender: FDA-Public Use
  Company Number: GB-PFIZER INC-2007002459

PATIENT
  Age: 86 Year
  Sex: Female

DRUGS (5)
  1. AROMASIN [Suspect]
     Route: 048
  2. IBUPROFEN [Concomitant]
  3. BENDROFLUAZIDE [Concomitant]
  4. AMLODIPINE [Concomitant]
  5. ASPIRIN [Concomitant]

REACTIONS (1)
  - VAGINAL HAEMORRHAGE [None]
